FAERS Safety Report 26059246 (Version 1)
Quarter: 2025Q4

REPORT INFORMATION
  Report Type: Spontaneous
  Country: US (occurrence: US)
  Receive Date: 20251118
  Receipt Date: 20251118
  Transmission Date: 20260118
  Serious: Yes (Life-Threatening, Hospitalization, Other)
  Sender: GLENMARK
  Company Number: US-MLMSERVICE-20251029-PI691196-00049-1

PATIENT
  Age: 45 Year
  Sex: Female

DRUGS (12)
  1. LAMOTRIGINE [Suspect]
     Active Substance: LAMOTRIGINE
     Indication: Product used for unknown indication
     Dosage: UNK INGESTION  (DOSAGE FORM; PILL  )
     Route: 048
  2. MELOXICAM [Suspect]
     Active Substance: MELOXICAM
     Indication: Product used for unknown indication
     Dosage: UNK INGESTION  (DOSAGE FORM: PILL )
     Route: 048
  3. METFORMIN HYDROCHLORIDE [Suspect]
     Active Substance: METFORMIN HYDROCHLORIDE
     Indication: Product used for unknown indication
     Dosage: UNK INGESTION   (DOSAGE FORM: PILL)
     Route: 048
  4. DULOXETINE [Suspect]
     Active Substance: DULOXETINE
     Indication: Product used for unknown indication
     Dosage: UNK INGESTION  (PILL)
     Route: 048
  5. BUPROPION [Suspect]
     Active Substance: BUPROPION
     Indication: Product used for unknown indication
     Dosage: UNK  INGESTION   (DOSAGE FORM: EXTENDED-RELEASE PILL )
     Route: 048
  6. AMITRIPTYLINE [Suspect]
     Active Substance: AMITRIPTYLINE
     Indication: Product used for unknown indication
     Dosage: UNK INGESTION  (DOSAGE FORM: PILL)
     Route: 048
  7. PRAZOSIN [Suspect]
     Active Substance: PRAZOSIN
     Indication: Product used for unknown indication
     Dosage: UNK INGESTION  (PILL)
     Route: 048
  8. HYDROXYZINE [Suspect]
     Active Substance: HYDROXYZINE HYDROCHLORIDE
     Indication: Product used for unknown indication
     Dosage: UNK ~INGESTION   (PILL)
     Route: 048
  9. BUSPIRONE [Suspect]
     Active Substance: BUSPIRONE HYDROCHLORIDE
     Indication: Product used for unknown indication
     Dosage: UNK INGESTION   (PILL)
     Route: 048
  10. DOXEPIN [Suspect]
     Active Substance: DOXEPIN
     Indication: Product used for unknown indication
     Dosage: UNK INGESTION  (PILL)
     Route: 048
  11. LOPERAMIDE [Suspect]
     Active Substance: LOPERAMIDE
     Indication: Product used for unknown indication
     Dosage: UNK INGESTION  (PILL)
     Route: 048
  12. QUETIAPINE [Suspect]
     Active Substance: QUETIAPINE
     Indication: Product used for unknown indication
     Dosage: UNK INGESTION  (PILL)
     Route: 048

REACTIONS (8)
  - Cardiogenic shock [Unknown]
  - Generalised tonic-clonic seizure [Unknown]
  - Corneal reflex decreased [Unknown]
  - Pupillary reflex impaired [Unknown]
  - Areflexia [Unknown]
  - Areflexia [Unknown]
  - Bezoar [Unknown]
  - Intentional overdose [Unknown]
